FAERS Safety Report 5625137-0 (Version None)
Quarter: 2008Q1

REPORT INFORMATION
  Report Type: 
  Country: None (occurrence: None)
  Receive Date: 20080213
  Receipt Date: 20080122
  Transmission Date: 20080703
  Serious: No
  Sender: FDA-Public Use
  Company Number: US-BOEHRINGER INGELHEIM GMBH, GERMANY-2008-BP-01099BP

PATIENT
  Sex: Female
  Weight: 57 kg

DRUGS (3)
  1. AGGRENOX [Suspect]
     Indication: CARDIOVASCULAR EVENT PROPHYLAXIS
     Route: 048
     Dates: start: 20080107
  2. AGGRENOX [Suspect]
     Indication: TRANSIENT ISCHAEMIC ATTACK
  3. TOPROL [Concomitant]
     Indication: HYPERTENSION
     Dates: start: 20080107

REACTIONS (4)
  - FATIGUE [None]
  - HEADACHE [None]
  - ISCHAEMIA [None]
  - SENSATION OF HEAVINESS [None]
